FAERS Safety Report 9385717 (Version 2)
Quarter: 2013Q3

REPORT INFORMATION
  Report Type: Spontaneous
  Country: US (occurrence: US)
  Receive Date: 20130705
  Receipt Date: 20130816
  Transmission Date: 20140515
  Serious: Yes (Hospitalization)
  Sender: FDA-Public Use
  Company Number: US-BRISTOL-MYERS SQUIBB COMPANY-19046796

PATIENT
  Age: 63 Year
  Sex: Male
  Weight: 80.72 kg

DRUGS (1)
  1. KENALOG-40 INJ [Suspect]
     Indication: PRURITUS

REACTIONS (2)
  - Arthropathy [Unknown]
  - Drug effect decreased [Unknown]
